FAERS Safety Report 8912130 (Version 1)
Quarter: 2012Q4

REPORT INFORMATION
  Report Type: 
  Country: US (occurrence: US)
  Receive Date: 20121116
  Receipt Date: 20121116
  Transmission Date: 20130627
  Serious: No
  Sender: FDA-Public Use
  Company Number: US-009507513-1211USA005766

PATIENT
  Sex: Female

DRUGS (3)
  1. JANUVIA [Suspect]
     Indication: DIABETES MELLITUS
     Dosage: 100mg/frequency unspecifiecd
     Route: 048
     Dates: start: 20120622
  2. LISINOPRIL [Concomitant]
     Dosage: 5mg
  3. METFORMIN [Concomitant]
     Dosage: 500mg

REACTIONS (1)
  - Vision blurred [Recovered/Resolved]
